FAERS Safety Report 7242644-8 (Version None)
Quarter: 2011Q1

REPORT INFORMATION
  Report Type: 
  Country: None (occurrence: None)
  Receive Date: 20110118
  Receipt Date: 20110107
  Transmission Date: 20110831
  Serious: Yes (Hospitalization)
  Sender: FDA-Public Use
  Company Number: 2010SP002288

PATIENT
  Age: 50 Year
  Sex: Female

DRUGS (7)
  1. PREMARIN [Concomitant]
  2. TAMIFLU [Concomitant]
  3. GABAPENTIN [Concomitant]
  4. CICLESONIDE [Suspect]
     Indication: RHINITIS PERENNIAL
     Dosage: 160 UG;QD;INHALATION
     Route: 055
     Dates: start: 20100420
  5. IBUPROFEN [Concomitant]
  6. LOVAZA [Concomitant]
  7. ASPIRIN [Concomitant]

REACTIONS (1)
  - CHEST PAIN [None]
